FAERS Safety Report 19788103 (Version 1)
Quarter: 2021Q3

REPORT INFORMATION
  Report Type: Spontaneous
  Country: US (occurrence: US)
  Receive Date: 20210905
  Receipt Date: 20210905
  Transmission Date: 20211014
  Serious: Yes (Other)
  Sender: FDA-Public Use
  Company Number: US-AUROBINDO-AUR-APL-2021-037112

PATIENT
  Age: 37 Year
  Sex: Male

DRUGS (4)
  1. ADALIMUMAB [Suspect]
     Active Substance: ADALIMUMAB
     Indication: PASH SYNDROME
     Dosage: UNK (FOR 4 MONTHS)
     Route: 065
  2. USTEKINUMAB [Suspect]
     Active Substance: USTEKINUMAB
     Indication: PASH SYNDROME
     Dosage: UNK (FOR 5 MONTHS)
     Route: 065
  3. CLINDAMYCIN. [Suspect]
     Active Substance: CLINDAMYCIN
     Indication: PASH SYNDROME
     Dosage: UNK (FOR 2 MONTHS)
     Route: 065
  4. RIFAMPICIN [Suspect]
     Active Substance: RIFAMPIN
     Indication: PASH SYNDROME
     Dosage: UNK (FOR 2 MONTHS)
     Route: 065

REACTIONS (1)
  - Treatment failure [Recovered/Resolved]
